FAERS Safety Report 19352723 (Version 4)
Quarter: 2021Q2

REPORT INFORMATION
  Report Type: Spontaneous
  Country: US (occurrence: US)
  Receive Date: 20210531
  Receipt Date: 20210607
  Transmission Date: 20210717
  Serious: No
  Sender: FDA-Public Use
  Company Number: NVSC2021US118168

PATIENT
  Sex: Female

DRUGS (2)
  1. TAGRISSO [Suspect]
     Active Substance: OSIMERTINIB
     Indication: PRODUCT USED FOR UNKNOWN INDICATION
     Dosage: UNK
     Route: 065
  2. TABRECTA [Suspect]
     Active Substance: CAPMATINIB
     Indication: HER2 GENE AMPLIFICATION
     Dosage: 200 MG
     Route: 048

REACTIONS (2)
  - Oedema [Unknown]
  - Product use in unapproved indication [Unknown]
